FAERS Safety Report 16606466 (Version 1)
Quarter: 2019Q3

REPORT INFORMATION
  Report Type: Spontaneous
  Country: US (occurrence: US)
  Receive Date: 20190722
  Receipt Date: 20190722
  Transmission Date: 20191004
  Serious: No
  Sender: FDA-Public Use
  Company Number: US-CELGENEUS-USA-20190705715

PATIENT
  Age: 84 Year
  Sex: Male

DRUGS (2)
  1. THALIDOMIDE [Suspect]
     Active Substance: THALIDOMIDE
     Indication: PRODUCT USED FOR UNKNOWN INDICATION
     Dosage: 50 MILLIGRAM
     Route: 048
     Dates: start: 2019
  2. JAKAFI [Concomitant]
     Active Substance: RUXOLITINIB
     Indication: MYELOFIBROSIS
     Dosage: 30 MILLIGRAM
     Route: 048
     Dates: start: 20190227

REACTIONS (3)
  - Memory impairment [Unknown]
  - Sluggishness [Unknown]
  - Fatigue [Unknown]

NARRATIVE: CASE EVENT DATE: 2019
